FAERS Safety Report 8556124-0 (Version None)
Quarter: 2012Q3

REPORT INFORMATION
  Report Type: 
  Country: None (occurrence: None)
  Receive Date: 20120719
  Receipt Date: 20120717
  Transmission Date: 20120928
  Serious: Yes (Hospitalization)
  Sender: FDA-Public Use
  Company Number: SP03328

PATIENT
  Age: 60 Year
  Sex: Female
  Weight: 60.2 kg

DRUGS (17)
  1. LANSOPRAZOLE [Concomitant]
  2. SODIUM PHOSPHATES [Suspect]
     Indication: CONSTIPATION
     Dates: start: 20100101
  3. BISACODYL [Suspect]
     Indication: CONSTIPATION
     Dosage: ORAL
     Route: 048
     Dates: start: 20100101
  4. IRBESARTAN AND HYDROCHLOROTHIAZIDE [Concomitant]
  5. NIFEDIPINE [Concomitant]
  6. ATHYMIL [Concomitant]
  7. ESCITALOPRAM [Concomitant]
  8. OMEPRAZOLE [Concomitant]
  9. FORTRANS [Concomitant]
  10. IMOVANE [Concomitant]
  11. ALPRAZOLAM [Concomitant]
  12. LAXATIVES [Concomitant]
  13. PLAQUENIL [Concomitant]
  14. LEVOTHYROXINE SODIUM [Concomitant]
  15. OSMOPREP [Suspect]
     Indication: CONSTIPATION
     Dosage: ORAL
     Route: 048
     Dates: start: 20101101, end: 20101101
  16. SEROPLEX LEVOTHYROX [Concomitant]
  17. PROPOLIS [Concomitant]

REACTIONS (11)
  - DIARRHOEA [None]
  - FAECALOMA [None]
  - DOLICHOCOLON [None]
  - DRUG ADMINISTRATION ERROR [None]
  - RENAL TUBULAR DISORDER [None]
  - RENAL FAILURE [None]
  - BACK PAIN [None]
  - ABDOMINAL PAIN [None]
  - NEPHROCALCINOSIS [None]
  - DIVERTICULUM [None]
  - CONSTIPATION [None]
